FAERS Safety Report 8801974 (Version 1)
Quarter: 2012Q4

REPORT INFORMATION
  Report Type: 
  Country: US (occurrence: US)
  Receive Date: 20120921
  Receipt Date: 20120921
  Transmission Date: 20130627
  Serious: No
  Sender: FDA-Public Use
  Company Number: US-BAYER-2012-097998

PATIENT
  Sex: Male

DRUGS (5)
  1. ALEVE CAPLET/TABLET,MIDOL EXTENDED RELIEF CAPLET [Suspect]
     Dosage: 1 DF, QD
     Route: 048
  2. BAYER ASPIRIN REGIMEN ADULT LOW STRENGTH [Concomitant]
     Indication: ISCHAEMIC HEART DISEASE PROPHYLAXIS
  3. BLOOD THINNER [Concomitant]
  4. PLAVIX [Concomitant]
  5. LEVOXACIN [Concomitant]

REACTIONS (1)
  - No adverse event [None]
